FAERS Safety Report 7545691-1 (Version None)
Quarter: 2011Q2

REPORT INFORMATION
  Report Type: 
  Country: None (occurrence: None)
  Receive Date: 20110613
  Receipt Date: 20110613
  Transmission Date: 20111010
  Serious: Yes (Other)
  Sender: FDA-Public Use
  Company Number: None

PATIENT
  Age: 39 Year
  Sex: Female
  Weight: 77.1115 kg

DRUGS (1)
  1. SPIRONOLACTONE [Suspect]
     Indication: HIRSUTISM
     Dosage: ONE TABLET DAILY PO
     Route: 048
     Dates: start: 20110521, end: 20110608

REACTIONS (5)
  - BREAST TENDERNESS [None]
  - NAUSEA [None]
  - ASTHENIA [None]
  - DRUG INEFFECTIVE [None]
  - BREAST ENLARGEMENT [None]
